FAERS Safety Report 7106649-X (Version None)
Quarter: 2010Q4

REPORT INFORMATION
  Report Type: 
  Country: None (occurrence: None)
  Receive Date: 20101116
  Receipt Date: 20101109
  Transmission Date: 20110411
  Serious: Yes (Other)
  Sender: FDA-Public Use
  Company Number: US-US-EMD SERONO, INC.-7027069

PATIENT
  Sex: Female

DRUGS (4)
  1. REBIF [Suspect]
     Indication: MULTIPLE SCLEROSIS
     Route: 058
     Dates: start: 20100628
  2. UNSPECIFIED MEDICATION [Concomitant]
     Indication: ANXIETY
  3. UNSPECIFIED MEDICATIONS [Concomitant]
  4. KEPPRA [Concomitant]
     Indication: CONVULSION

REACTIONS (5)
  - EPILEPSY [None]
  - HEADACHE [None]
  - INJECTION SITE DISCOLOURATION [None]
  - MENORRHAGIA [None]
  - POLYMENORRHOEA [None]
